FAERS Safety Report 24593945 (Version 2)
Quarter: 2024Q4

REPORT INFORMATION
  Report Type: Report from Study
  Country: AU (occurrence: AU)
  Receive Date: 20241108
  Receipt Date: 20241121
  Transmission Date: 20250115
  Serious: Yes (Disabling)
  Sender: UCB
  Company Number: AU-UCBSA-2024057548

PATIENT
  Sex: Male
  Weight: 101 kg

DRUGS (3)
  1. BIMEKIZUMAB [Suspect]
     Active Substance: BIMEKIZUMAB
     Indication: Psoriasis
     Dosage: 320 MILLIGRAM, EV 4 WEEKS
  2. BIMEKIZUMAB [Suspect]
     Active Substance: BIMEKIZUMAB
     Indication: Psoriasis
  3. BIMEKIZUMAB [Suspect]
     Active Substance: BIMEKIZUMAB
     Indication: Off label use

REACTIONS (2)
  - Psoriasis [Unknown]
  - Off label use [Unknown]
